FAERS Safety Report 4922805-0 (Version None)
Quarter: 2006Q1

REPORT INFORMATION
  Report Type: 
  Country: None (occurrence: None)
  Receive Date: 20060224
  Receipt Date: 20050324
  Transmission Date: 20060701
  Serious: Yes (Hospitalization, Disabling)
  Sender: FDA-Public Use
  Company Number: US-MERCK-0503USA04643

PATIENT
  Age: 58 Year
  Sex: Female
  Weight: 91 kg

DRUGS (1)
  1. VIOXX [Suspect]
     Indication: EXOSTOSIS
     Route: 048
     Dates: start: 19990101, end: 20040101

REACTIONS (2)
  - LIMB INJURY [None]
  - MYOCARDIAL INFARCTION [None]
